FAERS Safety Report 9310616 (Version 2)
Quarter: 2013Q2

REPORT INFORMATION
  Report Type: Spontaneous
  Country: BE (occurrence: BE)
  Receive Date: 20130527
  Receipt Date: 20130618
  Transmission Date: 20140414
  Serious: Yes (Death, Life-Threatening, Other)
  Sender: FDA-Public Use
  Company Number: BE-BRISTOL-MYERS SQUIBB COMPANY-18908608

PATIENT
  Age: 64 Year
  Sex: Female

DRUGS (7)
  1. SPRYCEL [Suspect]
     Indication: CHRONIC MYELOID LEUKAEMIA
     Dosage: DECREASE DOSE TO 70MG/D
     Route: 048
     Dates: start: 20121224
  2. KREDEX [Suspect]
     Dosage: 1DF:25+12.5MG
  3. PANTOZOL [Suspect]
  4. ASAFLOW [Suspect]
  5. XANAX [Concomitant]
  6. TRAZOLAN [Concomitant]
     Dosage: 1DF:100 UNIT NOS
  7. CIPRAMIL [Concomitant]
     Indication: ANTIDEPRESSANT THERAPY
     Dosage: 1 DF:20UNIT NOS

REACTIONS (4)
  - Cardiac arrest [Fatal]
  - Acute myocardial infarction [Fatal]
  - Pleural effusion [Recovered/Resolved]
  - Cerebral infarction [Unknown]
